FAERS Safety Report 5638044-4 (Version None)
Quarter: 2008Q1

REPORT INFORMATION
  Report Type: 
  Country: None (occurrence: None)
  Receive Date: 20080222
  Receipt Date: 20080222
  Transmission Date: 20080703
  Serious: Yes (Hospitalization)
  Sender: FDA-Public Use
  Company Number: None

PATIENT
  Sex: Female
  Weight: 59.5 kg

DRUGS (2)
  1. CARBOPLATIN [Suspect]
     Dosage: 585 MG
  2. TAXOL [Suspect]
     Dosage: 216 MG

REACTIONS (9)
  - ABDOMINAL WALL INFECTION [None]
  - ANAEMIA [None]
  - HAEMORRHAGE [None]
  - HEPATIC ENCEPHALOPATHY [None]
  - HYPOKALAEMIA [None]
  - MALNUTRITION [None]
  - OESOPHAGITIS [None]
  - THROMBOCYTOPENIA [None]
  - THROMBOSIS [None]
